FAERS Safety Report 5247490-2 (Version None)
Quarter: 2007Q1

REPORT INFORMATION
  Report Type: 
  Country: None (occurrence: None)
  Receive Date: 20070216
  Receipt Date: 20070205
  Transmission Date: 20070707
  Serious: Yes (Hospitalization)
  Sender: FDA-Public Use
  Company Number: 237670K06USA

PATIENT
  Age: 59 Year
  Sex: Male
  Weight: 83.9154 kg

DRUGS (8)
  1. REBIF [Suspect]
     Indication: MULTIPLE SCLEROSIS
     Dosage: 44 MCG, 3 IN 1 WEEKS, SUBCUTANEOUS
     Route: 058
     Dates: start: 20030505
  2. PLAVIX [Concomitant]
  3. TOPROL-XL [Concomitant]
  4. VYTORIN [Concomitant]
  5. ASPIRIN [Concomitant]
  6. AMANTADINE (AMANTADINE /00055901/) [Concomitant]
  7. ZANAFLEX [Concomitant]
  8. URECHOLINE [Concomitant]

REACTIONS (4)
  - CYSTITIS [None]
  - DYSSTASIA [None]
  - FALL [None]
  - VIRAL INFECTION [None]
